FAERS Safety Report 6218590-5 (Version None)
Quarter: 2009Q2

REPORT INFORMATION
  Report Type: 
  Country: None (occurrence: None)
  Receive Date: 20090608
  Receipt Date: 20090601
  Transmission Date: 20091009
  Serious: No
  Sender: FDA-Public Use
  Company Number: US-B.I. PHARMACEUTICALS,INC./RIDGEFIELD-2009-BP-06766BP

PATIENT
  Sex: Female

DRUGS (3)
  1. SPIRIVA [Suspect]
     Dosage: 18MCG
     Route: 055
     Dates: start: 20090528, end: 20090531
  2. REQUIP [Concomitant]
     Indication: RESTLESS LEGS SYNDROME
  3. FERROUS SULFATE TAB [Concomitant]
     Indication: ANAEMIA

REACTIONS (1)
  - RESTLESS LEGS SYNDROME [None]
